FAERS Safety Report 8971485 (Version 4)
Quarter: 2013Q1

REPORT INFORMATION
  Report Type: Spontaneous
  Country: US (occurrence: US)
  Receive Date: 20121217
  Receipt Date: 20130110
  Transmission Date: 20140127
  Serious: No
  Sender: FDA-Public Use
  Company Number: US-GLAXOSMITHKLINE-A1005005A

PATIENT
  Age: 65 Year
  Sex: Female
  Weight: 39 kg

DRUGS (1)
  1. EQUATE NTS 21MG [Suspect]
     Indication: SMOKING CESSATION THERAPY
     Route: 062
     Dates: start: 20121129, end: 20121206

REACTIONS (6)
  - Convulsion [Unknown]
  - Amnesia [Recovered/Resolved]
  - Vomiting [Unknown]
  - Tremor [Unknown]
  - Product quality issue [Unknown]
  - Ill-defined disorder [Unknown]
